FAERS Safety Report 7413419-1 (Version None)
Quarter: 2011Q2

REPORT INFORMATION
  Report Type: 
  Country: None (occurrence: None)
  Receive Date: 20110413
  Receipt Date: 20110405
  Transmission Date: 20111010
  Serious: Yes (Other)
  Sender: FDA-Public Use
  Company Number: US-ELI_LILLY_AND_COMPANY-US201104002787

PATIENT
  Sex: Female

DRUGS (4)
  1. ASPIRIN [Concomitant]
  2. EFFIENT [Suspect]
     Indication: ACUTE MYOCARDIAL INFARCTION
     Dosage: 60 MG, AS LOADING DOSE
     Route: 065
     Dates: start: 20110331
  3. EFFIENT [Suspect]
     Dosage: 10 MG, UNKNOWN
     Route: 065
  4. REOPRO [Concomitant]
     Indication: ACUTE MYOCARDIAL INFARCTION
     Dosage: UNK, UNKNOWN
     Route: 065
     Dates: start: 20110331, end: 20110331

REACTIONS (2)
  - THROMBOSIS IN DEVICE [None]
  - DRUG INEFFECTIVE [None]
